FAERS Safety Report 10084163 (Version 3)
Quarter: 2014Q3

REPORT INFORMATION
  Report Type: Spontaneous
  Country: US (occurrence: US)
  Receive Date: 20140417
  Receipt Date: 20140819
  Transmission Date: 20150326
  Serious: Yes (Hospitalization)
  Sender: FDA-Public Use
  Company Number: US-BAYER-2014-054915

PATIENT
  Age: 41 Year
  Sex: Female
  Weight: 86.17 kg

DRUGS (4)
  1. MULTIVITAMIN [Concomitant]
     Active Substance: VITAMINS
     Dosage: 1 TABLET DAILY
     Route: 048
  2. MIRENA [Suspect]
     Active Substance: LEVONORGESTREL
     Dosage: 20 MCG/24HR, CONT
     Route: 015
     Dates: start: 20111130, end: 20120517
  3. VITAMIN B12 [Concomitant]
     Active Substance: CYANOCOBALAMIN
     Dosage: 1 TABLET DAILY
     Route: 048
  4. TYLENOL EXTRA STRENGTH [Concomitant]
     Active Substance: ACETAMINOPHEN
     Dosage: 100 MG, EVERY 6 HOURS AS NEEDED
     Route: 048

REACTIONS (8)
  - Emotional distress [None]
  - Device issue [None]
  - Mental disorder [None]
  - Uterine perforation [None]
  - Injury [None]
  - Abdominal pain lower [None]
  - Device dislocation [None]
  - Anxiety [None]

NARRATIVE: CASE EVENT DATE: 201204
